FAERS Safety Report 24650759 (Version 3)
Quarter: 2025Q1

REPORT INFORMATION
  Report Type: Spontaneous
  Country: AU (occurrence: AU)
  Receive Date: 20241122
  Receipt Date: 20250204
  Transmission Date: 20250409
  Serious: Yes (Hospitalization, Other)
  Sender: RANBAXY
  Company Number: AU-SUN PHARMACEUTICAL INDUSTRIES LTD-2024RR-478638

PATIENT
  Sex: Female

DRUGS (3)
  1. QUETIAPINE [Suspect]
     Active Substance: QUETIAPINE
     Indication: Psychotherapy
     Route: 065
  2. OLANZAPINE [Suspect]
     Active Substance: OLANZAPINE
     Indication: Psychotherapy
     Dosage: 5 MILLIGRAM, TID
     Route: 065
  3. LITHIUM [Suspect]
     Active Substance: LITHIUM
     Indication: Psychotherapy
     Route: 065

REACTIONS (2)
  - Disease recurrence [Recovered/Resolved]
  - Drug ineffective [Unknown]
